FAERS Safety Report 15903911 (Version 1)
Quarter: 2019Q1

REPORT INFORMATION
  Report Type: Spontaneous
  Country: DE (occurrence: DE)
  Receive Date: 20190204
  Receipt Date: 20190204
  Transmission Date: 20190417
  Serious: Yes (Hospitalization)
  Sender: FDA-Public Use
  Company Number: DE-ACCORD-105516

PATIENT
  Age: 73 Year
  Sex: Female

DRUGS (10)
  1. SEEBRI [Concomitant]
     Active Substance: GLYCOPYRROLATE
     Dosage: NK
  2. CLOPIDOGREL [Suspect]
     Active Substance: CLOPIDOGREL BISULFATE
     Indication: PRODUCT USED FOR UNKNOWN INDICATION
     Dosage: 75 MG, NK
  3. PREDNISOLONE. [Concomitant]
     Active Substance: PREDNISOLONE
     Dosage: 50 MG, NK
  4. DISTRANEURIN [Concomitant]
     Active Substance: CLOMETHIAZOLE
     Dosage: NK
  5. TRAMADOL. [Concomitant]
     Active Substance: TRAMADOL
     Dosage: 200 MG, NK
  6. METHOCARBAMOL. [Concomitant]
     Active Substance: METHOCARBAMOL
     Dosage: NK
  7. ARLEVERT [Concomitant]
     Active Substance: CINNARIZINE\DIMENHYDRINATE
     Dosage: NK
  8. ACETYLSALICYLIC ACID [Suspect]
     Active Substance: ASPIRIN
     Indication: PRODUCT USED FOR UNKNOWN INDICATION
     Dosage: 100 MG, NK
  9. TAVOR [Concomitant]
     Dosage: 1 MG, NK
  10. PANTOPRAZOLE [Concomitant]
     Active Substance: PANTOPRAZOLE
     Dosage: 40 MG, 1-0-0-0

REACTIONS (4)
  - Haematemesis [Unknown]
  - Haematochezia [Unknown]
  - Chest discomfort [Unknown]
  - Anaemia [Unknown]
